FAERS Safety Report 5889033-6 (Version None)
Quarter: 2008Q3

REPORT INFORMATION
  Report Type: 
  Country: None (occurrence: None)
  Receive Date: 20080919
  Receipt Date: 20070907
  Transmission Date: 20090109
  Serious: No
  Sender: FDA-Public Use
  Company Number: US-KINGPHARMUSA00001-K200701152

PATIENT

DRUGS (3)
  1. SONATA [Suspect]
     Indication: INSOMNIA
     Dosage: 10 MG, QHS
     Route: 048
     Dates: start: 20050101
  2. SONATA [Suspect]
     Dosage: 20 MG, ON A FEW OCCASIONS
     Route: 048
  3. BUPROPION HCL [Concomitant]
     Dosage: 200 MG, QD

REACTIONS (2)
  - DRUG INEFFECTIVE [None]
  - INTENTIONAL DRUG MISUSE [None]
